FAERS Safety Report 5731797-6 (Version None)
Quarter: 2008Q2

REPORT INFORMATION
  Report Type: 
  Country: None (occurrence: None)
  Receive Date: 20080506
  Receipt Date: 20080506
  Transmission Date: 20081010
  Serious: Yes (Hospitalization)
  Sender: FDA-Public Use
  Company Number: None

PATIENT
  Age: 59 Year
  Sex: Male
  Weight: 103 kg

DRUGS (1)
  1. IBUPROFEN [Suspect]
     Indication: PAIN
     Dosage: 800 MG TID PO
     Route: 048
     Dates: start: 20071217, end: 20080116

REACTIONS (4)
  - ABDOMINAL PAIN UPPER [None]
  - DUODENITIS [None]
  - FAECES DISCOLOURED [None]
  - HIATUS HERNIA [None]
